FAERS Safety Report 7251037-9 (Version None)
Quarter: 2011Q1

REPORT INFORMATION
  Report Type: 
  Country: None (occurrence: None)
  Receive Date: 20110128
  Receipt Date: 20110118
  Transmission Date: 20110831
  Serious: Yes (Hospitalization, Other)
  Sender: FDA-Public Use
  Company Number: FR-ABBOTT-11P-056-0695188-00

PATIENT
  Age: 62 Year
  Sex: Female
  Weight: 81 kg

DRUGS (15)
  1. TERCIAN [Concomitant]
     Indication: ANXIETY
     Dates: start: 20090311
  2. HUMIRA [Suspect]
     Indication: CROHN'S DISEASE
     Route: 058
     Dates: start: 20080623
  3. NEURONTIN [Concomitant]
     Indication: NEUROPATHY PERIPHERAL
     Dates: start: 20031101
  4. ALPRAZOLAM [Concomitant]
     Indication: ANXIETY
     Dates: start: 20090311
  5. DILTIAZEM [Concomitant]
     Indication: HYPERTENSION
     Dates: start: 20090311
  6. HEXAQUINE [Concomitant]
     Indication: MUSCLE SPASMS
     Dosage: 1 CP THREE TIMES DAILY
     Dates: start: 19950406
  7. LEVOTHYROX [Concomitant]
     Indication: HYPOTHYROIDISM
     Dates: start: 19840101
  8. NOCTAMIDE [Concomitant]
     Indication: INSOMNIA
     Dates: start: 20090311
  9. ALDACTONE [Concomitant]
     Indication: HYPERALDOSTERONISM
  10. PYOSTACINE [Concomitant]
     Indication: HERPES ZOSTER
     Dates: start: 20100901, end: 20100901
  11. METHOTREXATE [Concomitant]
     Indication: CROHN'S DISEASE
     Dates: start: 20060216, end: 20090311
  12. SPASFON [Concomitant]
     Indication: ABDOMINAL PAIN
     Dosage: 1 CP (SIX PER DAY)
     Dates: start: 20020211
  13. DIFFU K [Concomitant]
     Indication: HYPOKALAEMIA
     Dates: start: 20080301
  14. SPECIAFOLDINE [Concomitant]
     Indication: ANAEMIA PROPHYLAXIS
     Dosage: ONE PER WEEK AFTER METHOTREXATE
     Dates: start: 20091102
  15. INIPOMP [Concomitant]
     Indication: GASTROOESOPHAGEAL REFLUX DISEASE
     Dates: start: 20090311

REACTIONS (1)
  - ANAL CANCER [None]
